FAERS Safety Report 11909114 (Version 2)
Quarter: 2016Q1

REPORT INFORMATION
  Report Type: Spontaneous
  Country: CA (occurrence: CA)
  Receive Date: 20160112
  Receipt Date: 20160118
  Transmission Date: 20160526
  Serious: Yes (Hospitalization)
  Sender: FDA-Public Use
  Company Number: CA-ROCHE-1691794

PATIENT
  Age: 53 Year
  Sex: Female

DRUGS (16)
  1. VITAMIN C [Concomitant]
     Active Substance: ASCORBIC ACID
  2. SPIRIVA [Concomitant]
     Active Substance: TIOTROPIUM BROMIDE MONOHYDRATE
  3. CETIRIZINE [Concomitant]
     Active Substance: CETIRIZINE HYDROCHLORIDE
  4. SINGULAIR [Concomitant]
     Active Substance: MONTELUKAST SODIUM
  5. NASONEX [Concomitant]
     Active Substance: MOMETASONE FUROATE
  6. VENTOLIN [Concomitant]
     Active Substance: ALBUTEROL SULFATE
  7. XOLAIR [Suspect]
     Active Substance: OMALIZUMAB
     Indication: ASTHMA
     Route: 058
     Dates: start: 20150821
  8. XOLAIR [Suspect]
     Active Substance: OMALIZUMAB
     Route: 058
     Dates: start: 20151111
  9. PREDNISONE. [Concomitant]
     Active Substance: PREDNISONE
  10. COVERSYL [Concomitant]
     Active Substance: PERINDOPRIL
  11. PULMICORT TURBUHALER [Concomitant]
     Active Substance: BUDESONIDE
  12. TRIAZOLAM. [Concomitant]
     Active Substance: TRIAZOLAM
  13. CLONIDINE. [Concomitant]
     Active Substance: CLONIDINE
  14. IPRATROPIUM + SALBUTAMOL [Concomitant]
  15. ATACAND [Concomitant]
     Active Substance: CANDESARTAN CILEXETIL
     Indication: HYPERTENSION
     Route: 065
     Dates: start: 20151028
  16. SYMBICORT [Concomitant]
     Active Substance: BUDESONIDE\FORMOTEROL FUMARATE DIHYDRATE

REACTIONS (5)
  - Wheezing [Recovering/Resolving]
  - Blood pressure decreased [Unknown]
  - Nausea [Recovering/Resolving]
  - Asthma [Unknown]
  - Headache [Recovered/Resolved]

NARRATIVE: CASE EVENT DATE: 20150821
